FAERS Safety Report 16865753 (Version 1)
Quarter: 2019Q3

REPORT INFORMATION
  Report Type: Spontaneous
  Country: US (occurrence: US)
  Receive Date: 20190805
  Receipt Date: 20190805
  Transmission Date: 20191005
  Serious: Yes (Other)
  Sender: FDA-Public Use
  Company Number: None

PATIENT

DRUGS (2)
  1. CONTRAST AGENT IOPAMIDOL [Suspect]
     Active Substance: IOPAMIDOL
  2. CONTRAST AGENT IOPAMIDOL [Suspect]
     Active Substance: IOPAMIDOL

REACTIONS (1)
  - Hypersensitivity [None]

NARRATIVE: CASE EVENT DATE: 20180320
